FAERS Safety Report 5502889-1 (Version None)
Quarter: 2007Q4

REPORT INFORMATION
  Report Type: 
  Country: None (occurrence: None)
  Receive Date: 20071031
  Receipt Date: 20071031
  Transmission Date: 20080405
  Serious: Yes (Other)
  Sender: FDA-Public Use
  Company Number: A0690719A

PATIENT
  Age: 49 Year
  Sex: Female

DRUGS (1)
  1. ALLI [Suspect]
     Dates: start: 20070601

REACTIONS (5)
  - ABDOMINAL DISTENSION [None]
  - ABDOMINAL PAIN UPPER [None]
  - COLITIS [None]
  - MALAISE [None]
  - STRESS [None]
